FAERS Safety Report 21951715 (Version 1)
Quarter: 2023Q1

REPORT INFORMATION
  Report Type: Spontaneous
  Country: SI (occurrence: None)
  Receive Date: 20230203
  Receipt Date: 20230203
  Transmission Date: 20230418
  Serious: Yes (Hospitalization, Other)
  Sender: FDA-Public Use
  Company Number: 2023A027914

PATIENT
  Age: 68 Year
  Sex: Male
  Weight: 135 kg

DRUGS (9)
  1. ROSUVASTATIN [Suspect]
     Active Substance: ROSUVASTATIN
     Dosage: 40 MG IN THE EVENING
     Route: 048
  2. AMOXICILLIN\CLAVULANIC ACID [Concomitant]
     Active Substance: AMOXICILLIN\CLAVULANIC ACID
     Dosage: 875MG/125MG ORALLY/12H
     Route: 048
  3. NEBIVOLOL [Concomitant]
     Active Substance: NEBIVOLOL
     Dosage: 5 MG IN THE MORNING
  4. SPIRONOLACTONE [Concomitant]
     Active Substance: SPIRONOLACTONE
     Dosage: 25 MG IN THE MORNING
  5. AMLODIPINE\PERINDOPRIL [Concomitant]
     Active Substance: AMLODIPINE\PERINDOPRIL
     Dosage: 8 MG/10 MG IN THE MORNING
  6. FUROSEMIDE [Concomitant]
     Active Substance: FUROSEMIDE
     Dosage: 40 MG IN THE MORNING
  7. APIXABAN [Concomitant]
     Active Substance: APIXABAN
  8. ETORICOXIB [Concomitant]
     Active Substance: ETORICOXIB
  9. ACETAMINOPHEN\TRAMADOL [Concomitant]
     Active Substance: ACETAMINOPHEN\TRAMADOL
     Indication: Pain

REACTIONS (8)
  - Acute kidney injury [Unknown]
  - Rhabdomyolysis [Unknown]
  - Alcoholic liver disease [Unknown]
  - Alcoholism [Unknown]
  - Urinary tract infection [Unknown]
  - Hyperammonaemia [Unknown]
  - Hypoproteinaemia [Unknown]
  - Hypoalbuminaemia [Unknown]
